FAERS Safety Report 4927917-3 (Version None)
Quarter: 2006Q1

REPORT INFORMATION
  Report Type: 
  Country: None (occurrence: None)
  Receive Date: 20060222
  Receipt Date: 20060208
  Transmission Date: 20060701
  Serious: Yes (Death, Life-Threatening, Hospitalization)
  Sender: FDA-Public Use
  Company Number: US016735

PATIENT
  Age: 79 Year
  Sex: Male
  Weight: 81.7382 kg

DRUGS (7)
  1. ARSENIC TRIOXIDE [Suspect]
     Indication: MYELODYSPLASTIC SYNDROME
     Dosage: 20.4 MG QD INTRAVENOUS DRIP
     Route: 041
     Dates: start: 20060106, end: 20060117
  2. CYTARABINE [Suspect]
     Indication: MYELODYSPLASTIC SYNDROME
     Dosage: 10 MG BID SUBCUTANEOUS
     Route: 058
     Dates: start: 20060106, end: 20060119
  3. PREVACID [Concomitant]
  4. AMIKACIN [Concomitant]
  5. IMIPENEM [Concomitant]
  6. VANCOLED [Concomitant]
  7. PROCRIT [Concomitant]

REACTIONS (2)
  - FLUID OVERLOAD [None]
  - MULTI-ORGAN FAILURE [None]
